FAERS Safety Report 25461135 (Version 1)
Quarter: 2025Q2

REPORT INFORMATION
  Report Type: Spontaneous
  Country: US (occurrence: None)
  Receive Date: 20250618
  Receipt Date: 20250618
  Transmission Date: 20250717
  Serious: Yes (Hospitalization)
  Sender: FDA-CTU
  Company Number: None

PATIENT
  Age: 65 Year
  Sex: Male
  Weight: 55.3 kg

DRUGS (11)
  1. XOLAIR [Suspect]
     Active Substance: OMALIZUMAB
     Indication: Urticaria chronic
     Route: 058
     Dates: start: 20250127, end: 20250320
  2. bethanechol 10 mg TID [Concomitant]
  3. bisaocydl1 0 mg every 3 days [Concomitant]
  4. cetirizine 5 mg daily [Concomitant]
  5. cholecalciferol 2000 units daily [Concomitant]
  6. docusate sodium 100 mg BID [Concomitant]
  7. levothyroxine 112 mcg noon [Concomitant]
  8. linaclotide 290 mcg daily [Concomitant]
  9. phenobarbital 100 mg BID [Concomitant]
  10. polyethylene glycol 17 grams BID [Concomitant]
  11. senna 8.6 mg BID [Concomitant]

REACTIONS (1)
  - Seizure [None]

NARRATIVE: CASE EVENT DATE: 20250410
